FAERS Safety Report 9530906 (Version 1)
Quarter: 2013Q2

REPORT INFORMATION
  Report Type: Spontaneous
  Country: US (occurrence: None)
  Receive Date: 20130418
  Receipt Date: 20130418
  Transmission Date: 20140414
  Serious: Yes (Other)
  Sender: FDA-Public Use
  Company Number: 1203USA02107

PATIENT
  Age: 49 Year
  Sex: Female

DRUGS (3)
  1. SINGULAIR (MONTELUKAST SODIUM) TABLET [Suspect]
     Route: 048
     Dates: start: 20120309
  2. SYNTHROID (LEVOTHYROXINE SODIUM) [Concomitant]
  3. DILANTIN (PHENYTOIN) [Concomitant]

REACTIONS (1)
  - Convulsion [None]
